FAERS Safety Report 24615274 (Version 2)
Quarter: 2025Q1

REPORT INFORMATION
  Report Type: Spontaneous
  Country: US (occurrence: US)
  Receive Date: 20241113
  Receipt Date: 20250317
  Transmission Date: 20250409
  Serious: No
  Sender: SANOFI AVENTIS
  Company Number: US-SA-2024SA324544

PATIENT
  Sex: Female
  Weight: 60.45 kg

DRUGS (11)
  1. DUPIXENT [Suspect]
     Active Substance: DUPILUMAB
     Indication: Nasal polyps
     Dosage: 300 MG, QOW
     Route: 058
  2. LORATADINE [Concomitant]
     Active Substance: LORATADINE
  3. VITAMINS [Concomitant]
     Active Substance: VITAMINS
  4. CELECOXIB [Concomitant]
     Active Substance: CELECOXIB
  5. BENADRYL ALLERGY [Concomitant]
     Active Substance: DIPHENHYDRAMINE HYDROCHLORIDE
  6. ESTRADIOL [Concomitant]
     Active Substance: ESTRADIOL
     Dosage: UNK, QW
  7. FLUTICASONE PROPIONATE [Concomitant]
     Active Substance: FLUTICASONE PROPIONATE
  8. DIETARY SUPPLEMENT [Concomitant]
     Active Substance: DIETARY SUPPLEMENT
  9. VITAMIN D3 [Concomitant]
     Active Substance: CHOLECALCIFEROL
  10. OCUVITE ADULT 50+ [ASCORBIC ACID;COPPER GLUCONATE;FISH OIL;TOCOPHEROL; [Concomitant]
  11. HERBALS [Concomitant]
     Active Substance: HERBALS

REACTIONS (3)
  - Vulvovaginal burning sensation [Unknown]
  - Fungal infection [Unknown]
  - Injection site pain [Unknown]

NARRATIVE: CASE EVENT DATE: 20240901
